FAERS Safety Report 8508566-7 (Version None)
Quarter: 2012Q3

REPORT INFORMATION
  Report Type: 
  Country: None (occurrence: None)
  Receive Date: 20120713
  Receipt Date: 20120710
  Transmission Date: 20120928
  Serious: Yes (Hospitalization)
  Sender: FDA-Public Use
  Company Number: PHHO2011US02513

PATIENT
  Sex: Male
  Weight: 81.5 kg

DRUGS (19)
  1. COREG [Concomitant]
  2. SAMARIUM [Suspect]
     Indication: PROSTATE CANCER
     Dosage: 86.9 MG, UNK
     Dates: start: 20101230, end: 20101230
  3. ASPIRIN [Concomitant]
  4. COENZYME Q10 [Concomitant]
  5. MULTI-VITAMIN [Concomitant]
  6. NAPROXEN [Concomitant]
  7. ZOCOR [Concomitant]
  8. ZOLEDRONOC ACID [Suspect]
     Indication: PROSTATE CANCER
     Dosage: 4 MG, QMO
     Route: 042
     Dates: start: 20110112, end: 20110112
  9. FISH OIL [Concomitant]
  10. CALTRATE 600 + VITAMIN D [Concomitant]
  11. LEVOTHROID [Concomitant]
  12. ZOLEDRONOC ACID [Suspect]
     Dosage: 4 MG, UNK
     Route: 042
     Dates: start: 20120620, end: 20120620
  13. VITAMIN D [Concomitant]
     Dosage: 400 IU, QD
     Route: 048
  14. CALCIUM [Concomitant]
     Dosage: 500 MG, QD
     Route: 048
  15. LUPRON [Suspect]
  16. LOTREL [Concomitant]
  17. GLUCOSAMINE [Concomitant]
  18. SIMVASTATIN [Concomitant]
  19. METAMUCIL-2 [Concomitant]

REACTIONS (11)
  - THROMBOSIS [None]
  - MALAISE [None]
  - FEMUR FRACTURE [None]
  - NEOPLASM MALIGNANT [None]
  - THROMBOCYTOPENIA [None]
  - PAIN IN EXTREMITY [None]
  - CONNECTIVE TISSUE DISORDER [None]
  - RENAL FAILURE ACUTE [None]
  - FATIGUE [None]
  - URETERIC OBSTRUCTION [None]
  - MUSCULOSKELETAL DISORDER [None]
